FAERS Safety Report 11844765 (Version 1)
Quarter: 2015Q4

REPORT INFORMATION
  Report Type: Spontaneous
  Country: US (occurrence: None)
  Receive Date: 20151216
  Receipt Date: 20151216
  Transmission Date: 20160305
  Serious: Yes (Other)
  Sender: FDA-Public Use
  Company Number: None

PATIENT
  Sex: Male
  Weight: 21 kg

DRUGS (5)
  1. GUANFACINE IR 3 MG TOTAL [Suspect]
     Active Substance: GUANFACINE
     Indication: ATTENTION DEFICIT/HYPERACTIVITY DISORDER
     Dates: start: 2014
  2. MELATONIN [Concomitant]
     Active Substance: MELATONIN
  3. ADDERALL [Concomitant]
     Active Substance: AMPHETAMINE ASPARTATE\AMPHETAMINE SULFATE\DEXTROAMPHETAMINE SACCHARATE\DEXTROAMPHETAMINE SULFATE
  4. GUANFACINE EXTENDED-RELEASE [Suspect]
     Active Substance: GUANFACINE
     Dates: start: 201510, end: 201512
  5. ZOLOFT [Concomitant]
     Active Substance: SERTRALINE HYDROCHLORIDE

REACTIONS (7)
  - Crying [None]
  - Drug ineffective [None]
  - Condition aggravated [None]
  - Anger [None]
  - Depression [None]
  - Obsessive-compulsive disorder [None]
  - Mood swings [None]
